FAERS Safety Report 4736185-7 (Version None)
Quarter: 2005Q3

REPORT INFORMATION
  Report Type: 
  Country: None (occurrence: None)
  Receive Date: 20050806
  Receipt Date: 20050628
  Transmission Date: 20060218
  Serious: Yes (Death, Hospitalization)
  Sender: FDA-Public Use
  Company Number: PHBS2005JP09283

PATIENT
  Age: 79 Year
  Sex: Female
  Weight: 43 kg

DRUGS (11)
  1. TEGRETOL [Suspect]
     Indication: RESTLESSNESS
     Dosage: 200 MG, QD
     Route: 048
     Dates: start: 20050613, end: 20050620
  2. TEGRETOL [Suspect]
     Dosage: 400 MG, QD
     Route: 048
     Dates: start: 20050621, end: 20050624
  3. ARICEPT [Suspect]
     Indication: DEMENTIA ALZHEIMER'S TYPE
     Dosage: 2.5 MG, QD
     Route: 048
     Dates: start: 20050613, end: 20050620
  4. ARICEPT [Suspect]
     Dosage: 3 MG, QD
     Route: 048
     Dates: start: 20050621, end: 20050624
  5. LUVOX [Suspect]
     Indication: DEPRESSION
     Dosage: 25 MG, BID
     Route: 048
     Dates: start: 20050613, end: 20050624
  6. ALPRAZOLAM [Concomitant]
     Indication: ANXIETY DISORDER
     Dosage: 1.2 MG/DAY
     Route: 048
     Dates: start: 20050613, end: 20050620
  7. ALPRAZOLAM [Concomitant]
     Dosage: 2.4 MG/DAY
     Route: 048
     Dates: start: 20050621, end: 20050624
  8. BROTIZOLAM [Concomitant]
     Indication: INSOMNIA
     Dosage: 0.25 MG, QD
     Route: 048
     Dates: end: 20050624
  9. ANAFRANIL [Concomitant]
  10. TOLEDOMIN [Concomitant]
  11. LEXOTAN [Concomitant]

REACTIONS (29)
  - ALANINE AMINOTRANSFERASE INCREASED [None]
  - ANOREXIA [None]
  - ANURIA [None]
  - ASPARTATE AMINOTRANSFERASE INCREASED [None]
  - BLOOD CREATINE PHOSPHOKINASE INCREASED [None]
  - BLOOD CREATININE INCREASED [None]
  - BLOOD LACTATE DEHYDROGENASE INCREASED [None]
  - BLOOD PRESSURE DECREASED [None]
  - BLOOD PRESSURE IMMEASURABLE [None]
  - BLOOD UREA INCREASED [None]
  - C-REACTIVE PROTEIN INCREASED [None]
  - CHEST PAIN [None]
  - CONSTIPATION [None]
  - CYANOSIS [None]
  - DEPRESSED LEVEL OF CONSCIOUSNESS [None]
  - DIARRHOEA [None]
  - DISSEMINATED INTRAVASCULAR COAGULATION [None]
  - HEART RATE DECREASED [None]
  - HYPOKINESIA [None]
  - IRRITABILITY [None]
  - MIDDLE INSOMNIA [None]
  - NEUROLEPTIC MALIGNANT SYNDROME [None]
  - OXYGEN SATURATION DECREASED [None]
  - PLATELET COUNT DECREASED [None]
  - PYREXIA [None]
  - RENAL FAILURE ACUTE [None]
  - RHABDOMYOLYSIS [None]
  - SHOCK [None]
  - TREMOR [None]
